FAERS Safety Report 18144071 (Version 2)
Quarter: 2021Q3

REPORT INFORMATION
  Report Type: Spontaneous
  Country: US (occurrence: US)
  Receive Date: 20200813
  Receipt Date: 20210702
  Transmission Date: 20211014
  Serious: Yes (Other)
  Sender: FDA-Public Use
  Company Number: US-GLAXOSMITHKLINE-US2020155407

PATIENT
  Sex: Female

DRUGS (6)
  1. RANITIDINE. [Suspect]
     Active Substance: RANITIDINE
  2. ZANTAC [Suspect]
     Active Substance: RANITIDINE HYDROCHLORIDE
     Dosage: UNKNOWN|BOTH
     Route: 065
     Dates: start: 201001, end: 201605
  3. ZANTAC [Suspect]
     Active Substance: RANITIDINE HYDROCHLORIDE
  4. ZANTAC [Suspect]
     Active Substance: RANITIDINE HYDROCHLORIDE
     Dosage: UNKNOWN|BOTH
     Route: 065
     Dates: start: 201001, end: 201605
  5. ZANTAC [Suspect]
     Active Substance: RANITIDINE HYDROCHLORIDE
     Dosage: UNKNOWN|BOTH
     Route: 065
     Dates: start: 201001, end: 201605
  6. RANITIDINE CAPSULE [Suspect]
     Active Substance: RANITIDINE
     Dosage: UNKNOWN|BOTH
     Route: 065
     Dates: start: 201001, end: 201605

REACTIONS (4)
  - Lung neoplasm malignant [Unknown]
  - Gastric cancer [Unknown]
  - Hepatic cancer [Unknown]
  - Colorectal cancer [Unknown]
